FAERS Safety Report 16060240 (Version 2)
Quarter: 2019Q1

REPORT INFORMATION
  Report Type: Spontaneous
  Country: TW (occurrence: TW)
  Receive Date: 20190312
  Receipt Date: 20190315
  Transmission Date: 20190418
  Serious: No
  Sender: FDA-Public Use
  Company Number: TW-ROCHE-2278757

PATIENT
  Age: 47 Year
  Sex: Female

DRUGS (11)
  1. HERCEPTIN [Suspect]
     Active Substance: TRASTUZUMAB
     Route: 065
     Dates: start: 201502, end: 201607
  2. CYCLOPHOSPHAMIDE. [Concomitant]
     Active Substance: CYCLOPHOSPHAMIDE
     Indication: BREAST CANCER
     Route: 065
     Dates: start: 2012, end: 201306
  3. LIPO-DOX [Concomitant]
     Indication: BREAST CANCER METASTATIC
     Route: 065
     Dates: start: 201506, end: 201511
  4. HERCEPTIN [Suspect]
     Active Substance: TRASTUZUMAB
     Indication: BREAST CANCER METASTATIC
     Route: 065
     Dates: start: 2012, end: 201306
  5. DOCETAXEL. [Concomitant]
     Active Substance: DOCETAXEL
     Indication: BREAST CANCER
     Route: 065
     Dates: start: 2012, end: 201306
  6. LAPATINIB [Concomitant]
     Active Substance: LAPATINIB
     Indication: BREAST CANCER METASTATIC
     Route: 065
     Dates: start: 201703
  7. FLUOROURACIL. [Concomitant]
     Active Substance: FLUOROURACIL
     Indication: BREAST CANCER
     Route: 065
     Dates: start: 2012, end: 201306
  8. EPIRUBICIN [Concomitant]
     Active Substance: EPIRUBICIN
     Indication: BREAST CANCER
     Route: 065
     Dates: start: 2012, end: 201306
  9. PERJETA [Suspect]
     Active Substance: PERTUZUMAB
     Indication: BREAST CANCER METASTATIC
     Route: 065
     Dates: start: 201506, end: 201606
  10. TAMOXIFEN [Concomitant]
     Active Substance: TAMOXIFEN
     Indication: BREAST CANCER
  11. KADCYLA [Suspect]
     Active Substance: ADO-TRASTUZUMAB EMTANSINE
     Indication: BREAST CANCER METASTATIC
     Route: 065
     Dates: start: 201609, end: 201702

REACTIONS (1)
  - Diarrhoea [Unknown]

NARRATIVE: CASE EVENT DATE: 201703
